FAERS Safety Report 17095774 (Version 1)
Quarter: 2019Q4

REPORT INFORMATION
  Report Type: Spontaneous
  Country: US (occurrence: US)
  Receive Date: 20191201
  Receipt Date: 20191201
  Transmission Date: 20200122
  Serious: No
  Sender: FDA-Public Use
  Company Number: US-JNJFOC-20191143250

PATIENT
  Age: 87 Year
  Sex: Female
  Weight: 56.3 kg

DRUGS (1)
  1. TYLENOL 8 HR ARTHRITIS PAIN [Suspect]
     Active Substance: ACETAMINOPHEN
     Indication: ARTHRITIS
     Dosage: TOOK 1 CAPLET 9:00 AM THIS MORNING AND ANOTHER 1 CAPLET 2:00 THIS AFTERNOON 2 TABLETS DAILY
     Route: 048
     Dates: start: 20191125

REACTIONS (3)
  - Product label issue [Unknown]
  - Incorrect dose administered [Unknown]
  - Inappropriate schedule of product administration [Unknown]

NARRATIVE: CASE EVENT DATE: 20191125
